FAERS Safety Report 16575188 (Version 1)
Quarter: 2019Q3

REPORT INFORMATION
  Report Type: Spontaneous
  Country: US (occurrence: US)
  Receive Date: 20190715
  Receipt Date: 20190715
  Transmission Date: 20191004
  Serious: No
  Sender: FDA-Public Use
  Company Number: PHEH2019US028983

PATIENT
  Sex: Female

DRUGS (2)
  1. HUMIRA [Suspect]
     Active Substance: ADALIMUMAB
     Indication: PSORIASIS
     Dosage: UNK UNK, Q2W
     Route: 058
     Dates: start: 2017, end: 2019
  2. COSENTYX [Suspect]
     Active Substance: SECUKINUMAB
     Indication: PSORIASIS
     Dosage: UNK
     Route: 065
     Dates: start: 2019, end: 2019

REACTIONS (3)
  - Psoriasis [Unknown]
  - Candida infection [Unknown]
  - Arthralgia [Unknown]
